FAERS Safety Report 7100217-1 (Version None)
Quarter: 2010Q4

REPORT INFORMATION
  Report Type: 
  Country: None (occurrence: None)
  Receive Date: 20101112
  Receipt Date: 20101102
  Transmission Date: 20110411
  Serious: Yes (Hospitalization, Other)
  Sender: FDA-Public Use
  Company Number: US-ELI_LILLY_AND_COMPANY-US201009008102

PATIENT
  Age: 62 Year
  Sex: Female
  Weight: 86.168 kg

DRUGS (4)
  1. EFFIENT [Suspect]
     Dosage: 60 MG, UNKNOWN
     Route: 048
  2. EFFIENT [Suspect]
     Dosage: 10 MG, UNKNOWN
     Route: 048
  3. ANTIHYPERTENSIVES [Concomitant]
     Dosage: UNK, UNKNOWN
     Route: 065
  4. ASPIRIN [Concomitant]
     Dosage: 325 MG, DAILY (1/D)
     Route: 065

REACTIONS (3)
  - FALL [None]
  - HAEMATOMA [None]
  - SKIN NECROSIS [None]
